FAERS Safety Report 8334690-8 (Version None)
Quarter: 2012Q2

REPORT INFORMATION
  Report Type: 
  Country: None (occurrence: None)
  Receive Date: 20120503
  Receipt Date: 20120430
  Transmission Date: 20120825
  Serious: Yes (Hospitalization, Other)
  Sender: FDA-Public Use
  Company Number: US-AMGEN-USASP2011020548

PATIENT
  Age: 49 Year
  Sex: Female

DRUGS (4)
  1. ENBREL [Suspect]
     Dosage: 50 MG, UNK
     Dates: start: 20060111, end: 20061030
  2. ENBREL [Suspect]
     Dosage: 50 MG, UNK
     Dates: start: 20050725, end: 20050725
  3. ENBREL [Suspect]
     Indication: CONNECTIVE TISSUE DISORDER
     Dosage: 50 MG, QWK
     Dates: start: 20050725, end: 20101213
  4. ENBREL [Suspect]
     Dosage: 50 MG, UNK
     Dates: start: 20050802, end: 20050802

REACTIONS (7)
  - PAIN [None]
  - METASTASES TO PELVIS [None]
  - LYMPHADENOPATHY [None]
  - TREATMENT FAILURE [None]
  - T-CELL LYMPHOMA STAGE III [None]
  - COMPRESSION FRACTURE [None]
  - METASTASES TO ABDOMINAL CAVITY [None]
